FAERS Safety Report 6842020-3 (Version None)
Quarter: 2010Q3

REPORT INFORMATION
  Report Type: 
  Country: None (occurrence: None)
  Receive Date: 20100714
  Receipt Date: 20070717
  Transmission Date: 20110219
  Serious: No
  Sender: FDA-Public Use
  Company Number: US-PFIZER INC-2007060653

PATIENT
  Sex: Female
  Weight: 79.4 kg

DRUGS (5)
  1. CHANTIX [Suspect]
     Indication: SMOKING CESSATION THERAPY
     Dates: start: 20070711
  2. COREG [Concomitant]
  3. HYDROCHLOROTHIAZIDE [Concomitant]
  4. AMBIEN [Concomitant]
  5. VICODIN [Concomitant]

REACTIONS (1)
  - DYSGEUSIA [None]
